FAERS Safety Report 4774945-7 (Version None)
Quarter: 2005Q3

REPORT INFORMATION
  Report Type: 
  Country: None (occurrence: None)
  Receive Date: 20050920
  Receipt Date: 20050906
  Transmission Date: 20060218
  Serious: Yes (Hospitalization, Other)
  Sender: FDA-Public Use
  Company Number: 2005-0008528

PATIENT
  Age: 59 Year
  Sex: Male
  Weight: 24.4942 kg

DRUGS (7)
  1. TRUVADA [Suspect]
     Indication: HIV INFECTION
     Dosage: ORAL
     Route: 048
     Dates: start: 20050507, end: 20050513
  2. EFAVIRENZ [Concomitant]
  3. FLUCONAZOLE [Concomitant]
  4. AUGMENTIN '125' [Concomitant]
  5. LUDIOMIL [Concomitant]
  6. ENALAPRIL MALEATE [Concomitant]
  7. AMARYL [Concomitant]

REACTIONS (9)
  - ANGIONEUROTIC OEDEMA [None]
  - BLOOD CHLORIDE INCREASED [None]
  - BLOOD CREATININE INCREASED [None]
  - BLOOD GLUCOSE INCREASED [None]
  - BLOOD SODIUM DECREASED [None]
  - BLOOD UREA INCREASED [None]
  - HYPOGLYCAEMIA [None]
  - RENAL IMPAIRMENT [None]
  - SOMNOLENCE [None]
